FAERS Safety Report 25526872 (Version 6)
Quarter: 2025Q4

REPORT INFORMATION
  Report Type: Report from Study
  Country: EU (occurrence: EU)
  Receive Date: 20250707
  Receipt Date: 20251221
  Transmission Date: 20260117
  Serious: Yes (Hospitalization)
  Sender: ABBVIE
  Company Number: EU-ABBVIE-6357023

PATIENT
  Age: 85 Year
  Sex: Male

DRUGS (3)
  1. CARBIDOPA\LEVODOPA [Suspect]
     Active Substance: CARBIDOPA\LEVODOPA
     Indication: Parkinson^s disease
     Dosage: MD 4.0 ML; CR 3.3 ML/H; ED 1.0 ML
     Route: 050
     Dates: start: 20250606, end: 2025
  2. CARBIDOPA\LEVODOPA [Suspect]
     Active Substance: CARBIDOPA\LEVODOPA
     Dosage: 4.0ML; CRT 3.1ML/H; ED 1.0ML ED 01:00 H MD 20:00 H
     Route: 050
     Dates: start: 2025
  3. CARBIDOPA\LEVODOPA [Suspect]
     Active Substance: CARBIDOPA\LEVODOPA
     Dosage: MD 4.0ML; CRT 3.1ML/H; ED 1.0ML
     Route: 050
     Dates: start: 20250701, end: 2025

REACTIONS (9)
  - Chills [Not Recovered/Not Resolved]
  - Dysphagia [Not Recovered/Not Resolved]
  - Dysarthria [Not Recovered/Not Resolved]
  - Device dislocation [Recovered/Resolved]
  - Musculoskeletal stiffness [Recovering/Resolving]
  - Device issue [Unknown]
  - Parkinson^s disease [Unknown]
  - Device occlusion [Unknown]
  - Device expulsion [Recovered/Resolved]

NARRATIVE: CASE EVENT DATE: 20250101
